FAERS Safety Report 8449938-9 (Version None)
Quarter: 2012Q2

REPORT INFORMATION
  Report Type: 
  Country: None (occurrence: None)
  Receive Date: 20120620
  Receipt Date: 20120614
  Transmission Date: 20120825
  Serious: Yes (Other)
  Sender: FDA-Public Use
  Company Number: PHFR2012GB003483

PATIENT

DRUGS (1)
  1. MIACALCIN [Suspect]
     Indication: BONE PAIN
     Route: 045

REACTIONS (2)
  - URINE OUTPUT INCREASED [None]
  - BONE PAIN [None]
